FAERS Safety Report 11410912 (Version 1)
Quarter: 2015Q3

REPORT INFORMATION
  Report Type: Other
  Country: FR (occurrence: FR)
  Receive Date: 20150824
  Receipt Date: 20150824
  Transmission Date: 20151125
  Serious: Yes (Hospitalization)
  Sender: FDA-Public Use
  Company Number: FR-MYLANLABS-2015M1027219

PATIENT

DRUGS (12)
  1. CISPLATINE MYLAN [Suspect]
     Active Substance: CISPLATIN
     Indication: TESTICULAR GERM CELL CANCER
     Dosage: 44.5 MG, CYCLE
     Route: 042
     Dates: start: 20150630, end: 20150702
  2. AZANTAC [Concomitant]
     Active Substance: RANITIDINE HYDROCHLORIDE
     Indication: PREMEDICATION
     Dosage: 150 MG, CYCLE
     Route: 042
     Dates: start: 20150629, end: 20150702
  3. INNOHEP [Concomitant]
     Active Substance: TINZAPARIN SODIUM
     Indication: PRODUCT USED FOR UNKNOWN INDICATION
  4. PACLITAXEL HOSPIRA [Suspect]
     Active Substance: PACLITAXEL
     Indication: TESTICULAR GERM CELL CANCER
     Dosage: 445 MG, CYCLE
     Route: 042
     Dates: start: 20150629, end: 20150629
  5. INEXIUM                            /01479302/ [Concomitant]
     Active Substance: ESOMEPRAZOLE MAGNESIUM
     Indication: PRODUCT USED FOR UNKNOWN INDICATION
     Dosage: 20 MG, UNK
  6. XANAX [Concomitant]
     Active Substance: ALPRAZOLAM
     Indication: PRODUCT USED FOR UNKNOWN INDICATION
  7. POLARAMINE [Concomitant]
     Active Substance: DEXCHLORPHENIRAMINE MALEATE
     Indication: PREMEDICATION
     Dosage: 5 MG, CYCLE
     Route: 042
     Dates: start: 20150629, end: 20150702
  8. EMEND [Concomitant]
     Active Substance: APREPITANT
     Indication: PREMEDICATION
     Dosage: UNK
     Route: 048
     Dates: start: 20150629, end: 20150701
  9. IFOSFAMIDE. [Suspect]
     Active Substance: IFOSFAMIDE
     Indication: TESTICULAR GERM CELL CANCER
     Dosage: 2670 MG, CYCLE
     Route: 042
     Dates: start: 20150630, end: 20150702
  10. UROMITEXAN [Suspect]
     Active Substance: MESNA
     Indication: TESTICULAR GERM CELL CANCER
     Dosage: 2670 MG, CYCLE
     Route: 042
     Dates: start: 20150630, end: 20150702
  11. METHYLPREDNISOLONE MYLAN [Concomitant]
     Active Substance: METHYLPREDNISOLONE
     Indication: PREMEDICATION
     Dosage: 65 MG, UNK
     Route: 042
     Dates: start: 20150629, end: 20150702
  12. ONDANSETRON ACCORD [Concomitant]
     Active Substance: ONDANSETRON
     Indication: PREMEDICATION
     Dosage: 8 MG, CYCLE
     Route: 042
     Dates: start: 20150629, end: 20150702

REACTIONS (4)
  - Encephalopathy [Recovered/Resolved]
  - Delirium [Recovered/Resolved]
  - Hallucination [Recovered/Resolved]
  - Confusional state [Recovered/Resolved]

NARRATIVE: CASE EVENT DATE: 20150702
